FAERS Safety Report 8276366-1 (Version None)
Quarter: 2012Q2

REPORT INFORMATION
  Report Type: 
  Country: None (occurrence: None)
  Receive Date: 20120409
  Receipt Date: 20120403
  Transmission Date: 20120825
  Serious: Yes (Death)
  Sender: FDA-Public Use
  Company Number: 2011SP043611

PATIENT
  Age: 71 Year
  Sex: Female
  Weight: 50 kg

DRUGS (8)
  1. PHENYTOIN SODIUM CAP [Concomitant]
  2. KYTRIL /01178102/ [Concomitant]
  3. TEMODAL [Suspect]
     Indication: ANAPLASTIC ASTROCYTOMA
     Dosage: PO, 135 MG/M2;QD;IV, 135 MG/M2:QD:IV 150 MG/M2;QD;IV
     Route: 042
     Dates: start: 20110509, end: 20110513
  4. TEMODAL [Suspect]
     Indication: ANAPLASTIC ASTROCYTOMA
     Dosage: PO, 135 MG/M2;QD;IV, 135 MG/M2:QD:IV 150 MG/M2;QD;IV
     Route: 042
     Dates: start: 20101005, end: 20101225
  5. TEMODAL [Suspect]
     Indication: ANAPLASTIC ASTROCYTOMA
     Dosage: PO, 135 MG/M2;QD;IV, 135 MG/M2:QD:IV 150 MG/M2;QD;IV
     Route: 042
     Dates: start: 20110301, end: 20110305
  6. TEMODAL [Suspect]
     Indication: ANAPLASTIC ASTROCYTOMA
     Dosage: PO, 135 MG/M2;QD;IV, 135 MG/M2:QD:IV 150 MG/M2;QD;IV
     Route: 042
     Dates: start: 20110606, end: 20110610
  7. SYMMETREL [Concomitant]
  8. NIVADIL [Concomitant]

REACTIONS (4)
  - ANAPLASTIC ASTROCYTOMA [None]
  - STREPTOCOCCUS TEST POSITIVE [None]
  - NEOPLASM PROGRESSION [None]
  - PNEUMONIA BACTERIAL [None]
